FAERS Safety Report 11154826 (Version 4)
Quarter: 2016Q2

REPORT INFORMATION
  Report Type: Spontaneous
  Country: US (occurrence: US)
  Receive Date: 20150529
  Receipt Date: 20160429
  Transmission Date: 20160815
  Serious: Yes (Other)
  Sender: FDA-Public Use
  Company Number: ADR-2015-00798

PATIENT
  Age: 48 Year
  Sex: Male

DRUGS (7)
  1. BACLOFEN. [Suspect]
     Active Substance: BACLOFEN
     Dosage: 12.6 MCG/DAY
     Route: 037
  2. BACLOFEN. [Suspect]
     Active Substance: BACLOFEN
     Route: 048
  3. BACLOFEN. [Suspect]
     Active Substance: BACLOFEN
     Dosage: 385.3 MCG/DAY
     Route: 037
  4. LIORESAL [Suspect]
     Active Substance: BACLOFEN
     Route: 037
     Dates: start: 20150416
  5. BACLOFEN. [Suspect]
     Active Substance: BACLOFEN
     Route: 048
  6. LIORESAL [Suspect]
     Active Substance: BACLOFEN
     Route: 037
  7. BACLOFEN. [Suspect]
     Active Substance: BACLOFEN
     Dosage: 160.2 MCG/DAY
     Route: 037

REACTIONS (15)
  - Muscle spasticity [Unknown]
  - Post lumbar puncture syndrome [Recovered/Resolved]
  - Back pain [Recovered/Resolved]
  - No therapeutic response [Unknown]
  - Medical device site inflammation [Recovered/Resolved]
  - Discomfort [Unknown]
  - Underdose [Unknown]
  - Muscle spasms [Unknown]
  - Fatigue [Unknown]
  - Therapeutic response unexpected [Unknown]
  - Medical device site swelling [Recovered/Resolved]
  - Pruritus [Recovering/Resolving]
  - Hypertonia [Recovered/Resolved]
  - Hypotonia [Recovered/Resolved]
  - Fall [Recovered/Resolved]

NARRATIVE: CASE EVENT DATE: 2014
